FAERS Safety Report 23610169 (Version 1)
Quarter: 2024Q1

REPORT INFORMATION
  Report Type: Spontaneous
  Country: IN (occurrence: IN)
  Receive Date: 20240308
  Receipt Date: 20240308
  Transmission Date: 20240410
  Serious: Yes (Death, Life-Threatening, Hospitalization, Other)
  Sender: FDA-Public Use
  Company Number: IN-SUNPHARMA-2024R1-434780AA

PATIENT
  Age: 43 Year
  Sex: Male

DRUGS (12)
  1. ATORVASTATIN [Suspect]
     Active Substance: ATORVASTATIN
     Indication: Acute coronary syndrome
     Dosage: 40 MILLIGRAM, EVERY 6 HOURS
     Route: 065
  2. ATORVASTATIN [Suspect]
     Active Substance: ATORVASTATIN
     Indication: Acute myocardial infarction
  3. CLOPIDOGREL [Suspect]
     Active Substance: CLOPIDOGREL BISULFATE
     Indication: Acute coronary syndrome
     Dosage: 75 MILLIGRAM, EVERY 6 HOURS
     Route: 065
  4. CLOPIDOGREL [Suspect]
     Active Substance: CLOPIDOGREL BISULFATE
     Indication: Acute myocardial infarction
  5. ASPIRIN [Suspect]
     Active Substance: ASPIRIN
     Indication: Acute coronary syndrome
     Dosage: 75 MILLIGRAM, EVERY 6 HOURS
     Route: 065
  6. ASPIRIN [Suspect]
     Active Substance: ASPIRIN
     Indication: Acute myocardial infarction
  7. NITROGLYCERIN [Suspect]
     Active Substance: NITROGLYCERIN
     Indication: Acute coronary syndrome
     Dosage: 2.6 MILLIGRAM, EVERY 6 HOURS
     Route: 065
  8. NITROGLYCERIN [Suspect]
     Active Substance: NITROGLYCERIN
     Indication: Acute myocardial infarction
  9. HEPARIN [Suspect]
     Active Substance: HEPARIN SODIUM
     Indication: Acute coronary syndrome
     Dosage: UNK (5000 UNITS) EVERY 6 HOURS
     Route: 065
  10. HEPARIN [Suspect]
     Active Substance: HEPARIN SODIUM
     Indication: Acute myocardial infarction
  11. STREPTOKINASE [Suspect]
     Active Substance: STREPTOKINASE
     Indication: Acute coronary syndrome
     Dosage: UNK (1.5 MILLION UNITS) EVERY 6 HOURS
     Route: 042
  12. STREPTOKINASE [Suspect]
     Active Substance: STREPTOKINASE
     Indication: Acute myocardial infarction

REACTIONS (6)
  - Haemorrhage [Fatal]
  - Apnoea [Fatal]
  - Cardiac arrest [Fatal]
  - Subarachnoid haemorrhage [Fatal]
  - Haemorrhage intracranial [Fatal]
  - Retroperitoneal haemorrhage [Fatal]
